FAERS Safety Report 8897267 (Version 1)
Quarter: 2012Q4

REPORT INFORMATION
  Report Type: 
  Country: US (occurrence: US)
  Receive Date: 20121108
  Receipt Date: 20121108
  Transmission Date: 20130627
  Serious: No
  Sender: FDA-Public Use
  Company Number: US-AMGEN-USASP2012029268

PATIENT
  Age: 65 Year
  Sex: Female
  Weight: 82.09 kg

DRUGS (14)
  1. ENBREL [Suspect]
     Indication: OSTEOARTHRITIS
     Dosage: 50 mg, qwk
     Route: 058
  2. CYMBALTA [Concomitant]
     Dosage: 20 mg, UNK
  3. CENTRUM SILVER                     /01292501/ [Concomitant]
  4. MELOXICAM [Concomitant]
     Dosage: 7.5 mg, UNK
  5. METHOTREXATE [Concomitant]
     Dosage: 2.5 mg, UNK
  6. PREDNISONE [Concomitant]
     Dosage: 1 mg, UNK
  7. PRAVASTATIN [Concomitant]
     Dosage: 10 mg, UNK
  8. CLONAZEPAM [Concomitant]
     Dosage: 1 mg, UNK
  9. CITRACAL PLUS [Concomitant]
  10. PROZAC [Concomitant]
     Dosage: 10 mg, UNK
  11. ASA [Concomitant]
     Dosage: 81 mg, UNK
  12. VITAMIN D3 [Concomitant]
     Dosage: 400 IU, UNK
  13. FLAXSEED OIL [Concomitant]
     Dosage: 1000 mg, UNK
  14. GRAPE SEED [Concomitant]
     Dosage: 100 mg, UNK

REACTIONS (2)
  - Injection site reaction [Recovering/Resolving]
  - Injection site erythema [Recovering/Resolving]
